FAERS Safety Report 18147144 (Version 2)
Quarter: 2020Q4

REPORT INFORMATION
  Report Type: Report from Study
  Country: GB (occurrence: GB)
  Receive Date: 20200813
  Receipt Date: 20201207
  Transmission Date: 20210113
  Serious: Yes (Other)
  Sender: FDA-Public Use
  Company Number: NVSC2020GB220880

PATIENT
  Age: 8 Year
  Sex: Male

DRUGS (1)
  1. DABRAFENIB [Suspect]
     Active Substance: DABRAFENIB
     Indication: ASTROCYTOMA
     Dosage: UNK
     Route: 048
     Dates: start: 201703, end: 201904

REACTIONS (13)
  - Rash maculo-papular [Unknown]
  - Erythema nodosum [Unknown]
  - Dry skin [Unknown]
  - Anaemia [Unknown]
  - Neutropenia [Unknown]
  - Melanocytic naevus [Unknown]
  - Lymphopenia [Unknown]
  - Neoplasm progression [Unknown]
  - Hair disorder [Unknown]
  - Blood alkaline phosphatase increased [Unknown]
  - Dry eye [Unknown]
  - Keratosis pilaris [Unknown]
  - Hyperkalaemia [Unknown]
